FAERS Safety Report 13908102 (Version 1)
Quarter: 2017Q3

REPORT INFORMATION
  Report Type: Spontaneous
  Country: US (occurrence: US)
  Receive Date: 20170825
  Receipt Date: 20170825
  Transmission Date: 20171127
  Serious: No
  Sender: FDA-Public Use
  Company Number: US-ROCHE-1118608

PATIENT
  Sex: Male

DRUGS (7)
  1. NUTROPIN AQ [Suspect]
     Active Substance: SOMATROPIN
     Indication: HYPOPITUITARISM
     Route: 058
  2. PROZAC [Concomitant]
     Active Substance: FLUOXETINE HYDROCHLORIDE
  3. NUTROPIN AQ [Suspect]
     Active Substance: SOMATROPIN
     Indication: PRIMARY HYPOGONADISM
  4. SYNTHROID [Concomitant]
     Active Substance: LEVOTHYROXINE SODIUM
     Route: 065
  5. PROVENTIL [Concomitant]
     Active Substance: ALBUTEROL
  6. NUTROPIN AQ [Suspect]
     Active Substance: SOMATROPIN
     Indication: BLOOD GROWTH HORMONE DECREASED
  7. ANDRODERM [Concomitant]
     Active Substance: TESTOSTERONE
     Route: 061

REACTIONS (9)
  - Asthenia [Unknown]
  - Sleep disorder [Unknown]
  - Fatigue [Unknown]
  - Fat tissue increased [Unknown]
  - Sinusitis [Unknown]
  - Malaise [Unknown]
  - Tachycardia [Unknown]
  - Agitation [Unknown]
  - Dizziness [Unknown]
